FAERS Safety Report 15143786 (Version 1)
Quarter: 2018Q3

REPORT INFORMATION
  Report Type: Spontaneous
  Country: US (occurrence: US)
  Receive Date: 20180713
  Receipt Date: 20180713
  Transmission Date: 20181010
  Serious: No
  Sender: FDA-Public Use
  Company Number: US-AMGEN-USASP2010011012

PATIENT
  Age: 76 Year
  Sex: Female
  Weight: 66.21 kg

DRUGS (9)
  1. PROCRIT [Suspect]
     Active Substance: ERYTHROPOIETIN
     Indication: ANAEMIA
     Dosage: 40000 IU, QWK
     Route: 058
     Dates: start: 201010, end: 201011
  2. PRINIVIL                           /00894001/ [Concomitant]
     Dosage: UNK UNK, QD
     Route: 048
     Dates: start: 201001
  3. DITROPAN                           /00538901/ [Concomitant]
     Dosage: UNK UNK, QD
     Route: 048
     Dates: start: 2010
  4. LASIX [Concomitant]
     Active Substance: FUROSEMIDE
     Dosage: UNK, QD
     Route: 048
     Dates: start: 201001
  5. CALCIUM [Concomitant]
     Active Substance: CALCIUM
     Dosage: UNK UNK, QD
     Route: 048
  6. GLUCOSAMINE [Concomitant]
     Active Substance: GLUCOSAMINE
     Dosage: UNK UNK, QD
     Route: 048
     Dates: start: 2010
  7. MULTIVITAMIN                       /00097801/ [Concomitant]
     Active Substance: VITAMINS
     Dosage: UNK
     Route: 048
  8. PROCRIT [Suspect]
     Active Substance: ERYTHROPOIETIN
     Dosage: 20000 IU, QWK
     Route: 058
     Dates: start: 201011
  9. FOLIC ACID. [Concomitant]
     Active Substance: FOLIC ACID
     Dosage: UNK UNK, QD
     Route: 048
     Dates: start: 2010

REACTIONS (2)
  - Abnormal loss of weight [Not Recovered/Not Resolved]
  - Fatigue [Not Recovered/Not Resolved]

NARRATIVE: CASE EVENT DATE: 201012
